FAERS Safety Report 6920621-1 (Version None)
Quarter: 2010Q3

REPORT INFORMATION
  Report Type: 
  Country: None (occurrence: None)
  Receive Date: 20100812
  Receipt Date: 20100806
  Transmission Date: 20110219
  Serious: Yes (Hospitalization)
  Sender: FDA-Public Use
  Company Number: US-BRISTOL-MYERS SQUIBB COMPANY-15229123

PATIENT
  Age: 46 Year
  Sex: Female
  Weight: 79 kg

DRUGS (9)
  1. DOXORUBICIN HCL [Suspect]
     Indication: BREAST CANCER
     Route: 042
     Dates: start: 20100104, end: 20100308
  2. CYCLOPHOSPHAMIDE [Suspect]
     Indication: BREAST CANCER
     Route: 042
     Dates: start: 20100104, end: 20100308
  3. PACLITAXEL [Suspect]
     Indication: BREAST CANCER
     Route: 042
     Dates: start: 20100329, end: 20100614
  4. TOPROL-XL [Concomitant]
     Indication: HYPERTENSION
     Dates: start: 20060101
  5. REQUIP [Concomitant]
     Indication: RESTLESS LEGS SYNDROME
     Dates: start: 20060101
  6. SINEMET [Concomitant]
     Dates: start: 20060101
  7. AZILECT [Concomitant]
     Indication: PARKINSON'S DISEASE
     Dates: start: 20060101
  8. CLONAZEPAM [Concomitant]
     Dates: start: 20060101
  9. CREATINE PHOSPHATE [Concomitant]
     Indication: PARKINSON'S DISEASE
     Dates: start: 20060101

REACTIONS (1)
  - DEEP VEIN THROMBOSIS [None]
